FAERS Safety Report 5810455-3 (Version None)
Quarter: 2008Q3

REPORT INFORMATION
  Report Type: 
  Country: None (occurrence: None)
  Receive Date: 20080715
  Receipt Date: 20080704
  Transmission Date: 20090109
  Serious: Yes (Disabling, Other)
  Sender: FDA-Public Use
  Company Number: FR-ROCHE-569731

PATIENT
  Sex: Female
  Weight: 44 kg

DRUGS (7)
  1. ISOTRETINOIN [Suspect]
     Route: 048
     Dates: start: 20061101
  2. ISOTRETINOIN [Suspect]
     Route: 048
     Dates: end: 20070430
  3. IMOVANE [Concomitant]
     Route: 048
     Dates: start: 19980101
  4. DEDROGYL [Concomitant]
     Dosage: STOPPED FOR 10 DAYS
  5. DEDROGYL [Concomitant]
  6. UNSPECIFIED DRUG [Concomitant]
     Dosage: DRUG REPORTED AS: THS  STOPPED FOR 10 DAYS
  7. UNSPECIFIED DRUG [Concomitant]

REACTIONS (7)
  - ANTI-THYROID ANTIBODY [None]
  - ASTHENIA [None]
  - DRY MOUTH [None]
  - DYSPNOEA EXERTIONAL [None]
  - EYE IRRITATION [None]
  - KERATOCONJUNCTIVITIS SICCA [None]
  - VULVOVAGINAL DRYNESS [None]
